FAERS Safety Report 24332225 (Version 1)
Quarter: 2024Q3

REPORT INFORMATION
  Report Type: Report from Study
  Country: US (occurrence: US)
  Receive Date: 20240918
  Receipt Date: 20240918
  Transmission Date: 20241017
  Serious: Yes (Hospitalization, Other)
  Sender: ACCORD
  Company Number: US-Accord-446305

PATIENT
  Sex: Female

DRUGS (1)
  1. CLOZAPINE [Suspect]
     Active Substance: CLOZAPINE
     Indication: Schizophrenia
     Dosage: 200MG AT NIGHT, 150MG IN THE DAYTIME

REACTIONS (6)
  - Psychotic disorder [Unknown]
  - Hallucination, auditory [Unknown]
  - Fall [Unknown]
  - COVID-19 [Unknown]
  - Cerebrovascular accident [Unknown]
  - Oedema peripheral [Unknown]
